FAERS Safety Report 9276668 (Version 1)
Quarter: 2013Q2

REPORT INFORMATION
  Report Type: Report from Study
  Country: NL (occurrence: NL)
  Receive Date: 20130507
  Receipt Date: 20130507
  Transmission Date: 20140414
  Serious: Yes (Hospitalization)
  Sender: FDA-Public Use
  Company Number: PHHO2013NL005999

PATIENT
  Age: 62 Year
  Sex: Male
  Weight: 85 kg

DRUGS (6)
  1. BLINDED ACZ885 [Suspect]
     Indication: CARDIOVASCULAR DISORDER
     Dosage: DOUBLE BLINDED
     Route: 058
     Dates: start: 20120402
  2. BLINDED NO TREATMENT RECEIVED [Suspect]
     Indication: CARDIOVASCULAR DISORDER
     Dosage: DOUBLE BLINDED
     Route: 058
     Dates: start: 20120402
  3. BLINDED PLACEBO [Suspect]
     Indication: CARDIOVASCULAR DISORDER
     Dosage: DOUBLE BLINDED
     Route: 058
     Dates: start: 20120402
  4. THEOLAIR [Concomitant]
     Indication: CHRONIC OBSTRUCTIVE PULMONARY DISEASE
     Dosage: 250 MG, BID
     Route: 048
     Dates: start: 20120917
  5. PULMICORT [Concomitant]
     Indication: CHRONIC OBSTRUCTIVE PULMONARY DISEASE
     Dosage: 0.25 MG, BID
  6. VENTOLIN [Concomitant]
     Indication: CHRONIC OBSTRUCTIVE PULMONARY DISEASE
     Dosage: 0.1 MG, PRN

REACTIONS (1)
  - Respiratory tract infection [Recovered/Resolved]
